FAERS Safety Report 20895965 (Version 2)
Quarter: 2022Q2

REPORT INFORMATION
  Report Type: Spontaneous
  Country: TR (occurrence: TR)
  Receive Date: 20220531
  Receipt Date: 20220614
  Transmission Date: 20220721
  Serious: Yes (Death, Hospitalization, Other)
  Sender: FDA-Public Use
  Company Number: TR-NOVARTISPH-NVSC2022TR125188

PATIENT
  Sex: Female

DRUGS (3)
  1. DICLOFENAC SODIUM [Suspect]
     Active Substance: DICLOFENAC SODIUM
     Indication: Foetal exposure during pregnancy
     Dosage: MATERNAL EXPOSURE DURING PREGNANCY: 50 MG/DAY FROM EXPOSURE PERIOD 4W5D- 5W0D
     Route: 064
     Dates: start: 20201214, end: 20201220
  2. ORNIDAZOLE [Suspect]
     Active Substance: ORNIDAZOLE
     Indication: Foetal exposure during pregnancy
     Dosage: MATERNAL EXPOSURE DURING PREGNANCY: 1000 MG/DAY (500 MG 2X1) FROM EXPOSURE PERIOD 3W5D-4W4D
     Route: 064
     Dates: start: 20201221, end: 20201223
  3. FAVIPIRAVIR [Suspect]
     Active Substance: FAVIPIRAVIR
     Indication: Foetal exposure during pregnancy
     Dosage: MATERNAL EXPOSURE DURING PREGNANCY :CUMULATIVE DOSE: 8000 MG
     Route: 064
     Dates: start: 20201001, end: 20201005

REACTIONS (4)
  - Death neonatal [Fatal]
  - Premature baby [Unknown]
  - Low birth weight baby [Unknown]
  - Foetal exposure during pregnancy [Unknown]
